FAERS Safety Report 16923922 (Version 2)
Quarter: 2019Q4

REPORT INFORMATION
  Report Type: Spontaneous
  Country: US (occurrence: US)
  Receive Date: 20191016
  Receipt Date: 20191019
  Transmission Date: 20200122
  Serious: Yes (Other)
  Sender: FDA-Public Use
  Company Number: NVSC2019US000673

PATIENT
  Age: 62 Year
  Sex: Male

DRUGS (6)
  1. ADALIMUMAB [Suspect]
     Active Substance: ADALIMUMAB
     Indication: RHEUMATOID ARTHRITIS
     Dosage: UNK
     Route: 065
  2. ETHAMBUTOL [Suspect]
     Active Substance: ETHAMBUTOL HYDROCHLORIDE
     Indication: GRANULOMA
     Dosage: UNK
     Route: 065
  3. METHOTREXATE. [Concomitant]
     Active Substance: METHOTREXATE
     Indication: RHEUMATOID ARTHRITIS
     Dosage: UNK
     Route: 065
  4. ISONIAZID. [Suspect]
     Active Substance: ISONIAZID
     Indication: GRANULOMA
     Dosage: UNK
     Route: 065
  5. RIFAMPIN. [Suspect]
     Active Substance: RIFAMPIN
     Indication: GRANULOMA
     Dosage: UNK
     Route: 065
  6. MGL-PYRAZINAMIDE [Suspect]
     Active Substance: PYRAZINAMIDE
     Indication: GRANULOMA
     Dosage: UNK
     Route: 065

REACTIONS (6)
  - Cough [Unknown]
  - Disseminated tuberculosis [Unknown]
  - Abdominal pain [Unknown]
  - Hepatotoxicity [Unknown]
  - Dyspnoea [Unknown]
  - Pyrexia [Unknown]
